FAERS Safety Report 10777242 (Version 1)
Quarter: 2015Q1

REPORT INFORMATION
  Report Type: Other
  Country: US (occurrence: US)
  Receive Date: 20150209
  Receipt Date: 20150209
  Transmission Date: 20150721
  Serious: Yes (Death)
  Sender: FDA-Public Use
  Company Number: US-FRI-1000074377

PATIENT
  Age: 43 Year
  Sex: Female

DRUGS (9)
  1. AMLODIPINE [Suspect]
     Active Substance: AMLODIPINE BESYLATE
  2. LEVOTHROID [Suspect]
     Active Substance: LEVOTHYROXINE SODIUM
  3. CARVEDILOL. [Suspect]
     Active Substance: CARVEDILOL
  4. OMEPRAZOLE. [Suspect]
     Active Substance: OMEPRAZOLE
  5. PRAMIPEXOLE [Suspect]
     Active Substance: PRAMIPEXOLE
  6. PRAVASTATIN [Suspect]
     Active Substance: PRAVASTATIN\PRAVASTATIN SODIUM
  7. TOPIRAMATE. [Suspect]
     Active Substance: TOPIRAMATE
  8. RISPERIDONE. [Suspect]
     Active Substance: RISPERIDONE
  9. CITALOPRAM [Suspect]
     Active Substance: CITALOPRAM HYDROBROMIDE

REACTIONS (3)
  - Completed suicide [Fatal]
  - Cardiac arrest [None]
  - Respiratory arrest [None]
